FAERS Safety Report 5596518-9 (Version None)
Quarter: 2007Q4

REPORT INFORMATION
  Report Type: 
  Country: None (occurrence: None)
  Receive Date: 20071219
  Receipt Date: 20070924
  Transmission Date: 20080405
  Serious: Yes (Other)
  Sender: FDA-Public Use
  Company Number: HQWYE299425SEP07

PATIENT
  Age: 58 Year
  Sex: Male
  Weight: 104.42 kg

DRUGS (8)
  1. TORISEL [Suspect]
     Indication: RENAL CELL CARCINOMA STAGE UNSPECIFIED
     Dosage: 25 MG 1X PER 1 DAY, INTRAVENOUS ; 25 MG 1X PER 1 DAY, INTRAVENOUS
     Route: 042
     Dates: start: 20070917, end: 20070917
  2. TORISEL [Suspect]
     Indication: RENAL CELL CARCINOMA STAGE UNSPECIFIED
     Dosage: 25 MG 1X PER 1 DAY, INTRAVENOUS ; 25 MG 1X PER 1 DAY, INTRAVENOUS
     Route: 042
     Dates: start: 20070928, end: 20070928
  3. CENTRUM SILVER (MULTIVITAMIN/MULTIMINERAL) [Concomitant]
  4. AMLODIPINE [Concomitant]
  5. LOVASTATIN [Concomitant]
  6. METOPROLOL TARTRATE [Concomitant]
  7. LEVOTHYROXINE SODIUM [Concomitant]
  8. ACETYLSALICYLIC ACID ENTERIC COATED (ACETYLSALICYLIC ACID) [Concomitant]

REACTIONS (1)
  - LIP SWELLING [None]
